FAERS Safety Report 5368615-4 (Version None)
Quarter: 2007Q2

REPORT INFORMATION
  Report Type: 
  Country: None (occurrence: None)
  Receive Date: 20070625
  Receipt Date: 20070613
  Transmission Date: 20071010
  Serious: Yes (Hospitalization, Other)
  Sender: FDA-Public Use
  Company Number: EE-ASTRAZENECA-2007SE00676

PATIENT
  Age: 17337 Day
  Sex: Male

DRUGS (3)
  1. CANDESARTAN CILEXETIL [Suspect]
     Indication: HYPERTENSION
     Route: 048
     Dates: start: 20061206, end: 20070201
  2. ZADITEN [Concomitant]
     Route: 048
  3. GLUCOSAMINE [Concomitant]
     Indication: PROPHYLAXIS
     Route: 048
     Dates: start: 20061120

REACTIONS (1)
  - ATRIAL FIBRILLATION [None]
